FAERS Safety Report 7153383-6 (Version None)
Quarter: 2010Q4

REPORT INFORMATION
  Report Type: 
  Country: None (occurrence: None)
  Receive Date: 20101213
  Receipt Date: 20101202
  Transmission Date: 20110411
  Serious: Yes (Hospitalization)
  Sender: FDA-Public Use
  Company Number: US-JNJFOC-20101102613

PATIENT
  Sex: Female
  Weight: 60.7 kg

DRUGS (4)
  1. REMICADE [Suspect]
     Indication: CROHN'S DISEASE
     Route: 042
  2. PREDNISONE [Concomitant]
  3. ANTIBIOTICS [Concomitant]
  4. VORICONAZOLE [Concomitant]

REACTIONS (1)
  - CROHN'S DISEASE [None]
